FAERS Safety Report 8502798-X (Version None)
Quarter: 2012Q3

REPORT INFORMATION
  Report Type: 
  Country: None (occurrence: None)
  Receive Date: 20120711
  Receipt Date: 20120627
  Transmission Date: 20120928
  Serious: Yes (Hospitalization)
  Sender: FDA-Public Use
  Company Number: GR-MYLANLABS-2012S1013192

PATIENT
  Age: 61 Year
  Sex: Female

DRUGS (5)
  1. HYDROCHLOROTHIAZIDE [Concomitant]
     Dosage: 12.5 MG/DAY
     Route: 065
  2. METFORMIN HCL [Suspect]
     Indication: TYPE 2 DIABETES MELLITUS
     Dosage: 1700 MG/DAY
     Route: 065
  3. DICLOFENAC SODIUM [Suspect]
     Indication: JOINT INJURY
     Dosage: 75 MG/DAY
     Route: 048
  4. GLIMEPIRIDE [Concomitant]
     Dosage: 4 MG/DAY
     Route: 065
  5. ENALAPRIL MALEATE [Concomitant]
     Dosage: 20 MG/DAY
     Route: 065

REACTIONS (2)
  - LACTIC ACIDOSIS [None]
  - RENAL FAILURE ACUTE [None]
